FAERS Safety Report 6243698-8 (Version None)
Quarter: 2009Q2

REPORT INFORMATION
  Report Type: 
  Country: None (occurrence: None)
  Receive Date: 20090624
  Receipt Date: 20090615
  Transmission Date: 20091009
  Serious: No
  Sender: FDA-Public Use
  Company Number: US-MYLANLABS-2009S1007640

PATIENT
  Age: 68 Year
  Sex: Female
  Weight: 65.77 kg

DRUGS (25)
  1. ALPRAZOLAM [Suspect]
     Indication: ANXIETY
     Route: 048
     Dates: start: 20081201, end: 20090401
  2. ALPRAZOLAM [Suspect]
     Indication: DEPRESSION
     Route: 048
     Dates: start: 20081201, end: 20090401
  3. ALPRAZOLAM [Suspect]
     Route: 048
     Dates: end: 20090404
  4. ALPRAZOLAM [Suspect]
     Route: 048
     Dates: end: 20090404
  5. ALPRAZOLAM [Suspect]
     Route: 048
     Dates: end: 20090518
  6. ALPRAZOLAM [Suspect]
     Route: 048
     Dates: end: 20090518
  7. ALPRAZOLAM [Suspect]
     Route: 048
     Dates: start: 20090404, end: 20090414
  8. ALPRAZOLAM [Suspect]
     Route: 048
     Dates: start: 20090404, end: 20090414
  9. ALPRAZOLAM [Suspect]
     Route: 048
     Dates: start: 20090414, end: 20090428
  10. ALPRAZOLAM [Suspect]
     Route: 048
     Dates: start: 20090414, end: 20090428
  11. ALPRAZOLAM [Suspect]
     Route: 048
     Dates: start: 20090428, end: 20090518
  12. ALPRAZOLAM [Suspect]
     Route: 048
     Dates: start: 20090428, end: 20090518
  13. ALPRAZOLAM [Suspect]
     Route: 048
     Dates: start: 20090519
  14. ALPRAZOLAM [Suspect]
     Route: 048
     Dates: start: 20090519
  15. LEXAPRO [Suspect]
     Indication: DEPRESSION
     Route: 048
     Dates: start: 20081201, end: 20090414
  16. LIPITOR [Concomitant]
     Indication: BLOOD CHOLESTEROL INCREASED
     Route: 048
  17. BENICAR [Concomitant]
     Route: 048
  18. EVISTA /01303201/ [Concomitant]
     Route: 048
  19. SYNTHROID [Concomitant]
     Indication: AUTOIMMUNE THYROIDITIS
     Route: 048
  20. CIPRO [Concomitant]
  21. NITROFURANTOIN [Concomitant]
  22. AZITHROMYCIN [Concomitant]
  23. DOXYCYCLINE [Concomitant]
  24. OMEPRAZOLE [Concomitant]
  25. FOLIC ACID [Concomitant]

REACTIONS (11)
  - ASTHENIA [None]
  - CHEST PAIN [None]
  - CHILLS [None]
  - DRUG WITHDRAWAL SYNDROME [None]
  - DYSKINESIA [None]
  - HEADACHE [None]
  - MALAISE [None]
  - NAUSEA [None]
  - RETCHING [None]
  - TREMOR [None]
  - WEIGHT DECREASED [None]
